FAERS Safety Report 11336762 (Version 2)
Quarter: 2015Q3

REPORT INFORMATION
  Report Type: Spontaneous
  Country: TR (occurrence: TR)
  Receive Date: 20150804
  Receipt Date: 20150908
  Transmission Date: 20151125
  Serious: Yes (Other)
  Sender: FDA-Public Use
  Company Number: TR-BAYER-2015-391165

PATIENT
  Age: 35 Year
  Sex: Male

DRUGS (3)
  1. CLARINASE [Suspect]
     Active Substance: LORATADINE\PSEUDOEPHEDRINE SULFATE
     Indication: SINUS CONGESTION
  2. AVAMYS [Concomitant]
     Active Substance: FLUTICASONE FUROATE
     Route: 045
  3. CLARINASE [Suspect]
     Active Substance: LORATADINE\PSEUDOEPHEDRINE SULFATE
     Indication: EAR CONGESTION
     Dosage: UNK

REACTIONS (7)
  - Mental impairment [Recovering/Resolving]
  - Dry mouth [None]
  - Depression [None]
  - Palpitations [Recovered/Resolved]
  - Hallucination [Recovered/Resolved]
  - Dyspnoea [Recovered/Resolved]
  - Hyperhidrosis [Recovered/Resolved]
